FAERS Safety Report 24410141 (Version 1)
Quarter: 2024Q4

REPORT INFORMATION
  Report Type: Spontaneous
  Country: US (occurrence: US)
  Receive Date: 20241008
  Receipt Date: 20241008
  Transmission Date: 20250114
  Serious: Yes (Other)
  Sender: SPECGX
  Company Number: US-SPECGX-T202400910

PATIENT
  Age: 47 Year
  Sex: Female

DRUGS (1)
  1. METHADONE [Suspect]
     Active Substance: METHADONE HYDROCHLORIDE
     Indication: Drug use disorder
     Dosage: 20 MILLIGRAM
     Route: 048
     Dates: start: 20240409

REACTIONS (4)
  - Bronchospasm [Recovered/Resolved]
  - Anxiety [Recovered/Resolved]
  - Epigastric discomfort [Recovered/Resolved]
  - Flushing [Recovered/Resolved]

NARRATIVE: CASE EVENT DATE: 20240409
